FAERS Safety Report 16729498 (Version 1)
Quarter: 2019Q3

REPORT INFORMATION
  Report Type: Spontaneous
  Country: US (occurrence: US)
  Receive Date: 20190705
  Receipt Date: 20190705
  Transmission Date: 20191005
  Serious: No
  Sender: FDA-Public Use
  Company Number: None

PATIENT
  Age: 62 Year
  Sex: Female
  Weight: 108.86 kg

DRUGS (1)
  1. REMICADE [Suspect]
     Active Substance: INFLIXIMAB
     Indication: RHEUMATOID ARTHRITIS
     Dosage: INFUSE 327MG [3MG/KG];INTRAVENOULSY AT WEEKS 0.2, AND 6 AS DIRECTED?
     Route: 042
     Dates: start: 201708

REACTIONS (1)
  - Antibiotic therapy [None]
